FAERS Safety Report 7395268-6 (Version None)
Quarter: 2011Q2

REPORT INFORMATION
  Report Type: 
  Country: None (occurrence: None)
  Receive Date: 20110405
  Receipt Date: 20110331
  Transmission Date: 20111010
  Serious: Yes (Death)
  Sender: FDA-Public Use
  Company Number: AR-ROXANE LABORATORIES, INC.-2011-RO-00441RO

PATIENT
  Age: 58 Year
  Sex: Male

DRUGS (4)
  1. DEXAMETHASONE [Suspect]
     Route: 058
  2. AMYTRIPTILINE [Suspect]
  3. LAXATIVES [Suspect]
     Indication: CONSTIPATION
  4. MORPHINE [Suspect]
     Indication: CANCER PAIN
     Route: 048

REACTIONS (1)
  - COMPLETED SUICIDE [None]
